FAERS Safety Report 6023688-0 (Version None)
Quarter: 2008Q4

REPORT INFORMATION
  Report Type: 
  Country: None (occurrence: None)
  Receive Date: 20081226
  Receipt Date: 20081226
  Transmission Date: 20090506
  Serious: No
  Sender: FDA-Public Use
  Company Number: None

PATIENT
  Age: 32 Year
  Sex: Female
  Weight: 76.6579 kg

DRUGS (1)
  1. CHANTIX [Suspect]
     Indication: SMOKING CESSATION THERAPY
     Dosage: .5 MG ONCE PER DAY PO
     Route: 048
     Dates: start: 20081112, end: 20081231

REACTIONS (3)
  - DYSMENORRHOEA [None]
  - METRORRHAGIA [None]
  - NAUSEA [None]
